FAERS Safety Report 12308897 (Version 1)
Quarter: 2016Q2

REPORT INFORMATION
  Report Type: Report from Study
  Country: CA (occurrence: CA)
  Receive Date: 20160427
  Receipt Date: 20160427
  Transmission Date: 20160815
  Serious: Yes (Death, Other)
  Sender: FDA-Public Use
  Company Number: CA-ROCHE-1747696

PATIENT

DRUGS (1)
  1. TRASTUZUMAB [Suspect]
     Active Substance: TRASTUZUMAB
     Indication: BREAST CANCER
     Route: 065

REACTIONS (5)
  - Pulmonary oedema [Unknown]
  - Cardiac death [Fatal]
  - Cardiac disorder [Unknown]
  - Cardiac failure congestive [Unknown]
  - Cardiomyopathy [Unknown]
